FAERS Safety Report 10376642 (Version 1)
Quarter: 2014Q3

REPORT INFORMATION
  Report Type: Spontaneous
  Country: JP (occurrence: JP)
  Receive Date: 20140811
  Receipt Date: 20140811
  Transmission Date: 20150326
  Serious: Yes (Other)
  Sender: FDA-Public Use
  Company Number: JP-CELGENEUS-087-50794-14081072

PATIENT
  Age: 79 Year
  Sex: Male
  Weight: 68.5 kg

DRUGS (5)
  1. VIDAZA [Suspect]
     Active Substance: AZACITIDINE
     Indication: MYELOPROLIFERATIVE DISORDER
  2. VIDAZA [Suspect]
     Active Substance: AZACITIDINE
     Indication: MYELODYSPLASTIC SYNDROME
     Dosage: 75 MILLIGRAM/SQ. METER
     Route: 065
     Dates: start: 201105
  3. RANIMUSTINE [Concomitant]
     Active Substance: RANIMUSTINE
     Indication: FULL BLOOD COUNT DECREASED
     Route: 065
     Dates: start: 201107
  4. METENOLONE [Concomitant]
     Active Substance: METHENOLONE ENANTHATE
     Indication: ANAEMIA
     Dosage: 20 MILLIGRAM
     Route: 065
     Dates: start: 201103
  5. RED BLOOD CELLS [Concomitant]
     Active Substance: HUMAN RED BLOOD CELL
     Indication: ANAEMIA
     Route: 065
     Dates: start: 201105

REACTIONS (4)
  - White blood cell count increased [Recovering/Resolving]
  - Platelet count increased [Recovering/Resolving]
  - Acute febrile neutrophilic dermatosis [Recovering/Resolving]
  - Blood potassium increased [Unknown]

NARRATIVE: CASE EVENT DATE: 2011
